FAERS Safety Report 13913026 (Version 3)
Quarter: 2017Q4

REPORT INFORMATION
  Report Type: Report from Study
  Country: PK (occurrence: PK)
  Receive Date: 20170828
  Receipt Date: 20171004
  Transmission Date: 20180320
  Serious: Yes (Death, Other)
  Sender: FDA-Public Use
  Company Number: PHHY2017PK126424

PATIENT
  Sex: Female
  Weight: 46 kg

DRUGS (1)
  1. TASIGNA [Suspect]
     Active Substance: NILOTINIB
     Indication: CHRONIC MYELOID LEUKAEMIA
     Dosage: 1 DF, QD
     Route: 048
     Dates: start: 20150227

REACTIONS (6)
  - Confusional state [Fatal]
  - Renal failure [Fatal]
  - Urine output decreased [Fatal]
  - Haemoglobin decreased [Unknown]
  - Oedema [Fatal]
  - Dysuria [Fatal]
